FAERS Safety Report 14279266 (Version 2)
Quarter: 2018Q1

REPORT INFORMATION
  Report Type: Spontaneous
  Country: US (occurrence: US)
  Receive Date: 20171212
  Receipt Date: 20180327
  Transmission Date: 20180508
  Serious: Yes (Other)
  Sender: FDA-Public Use
  Company Number: US-BAYER-2017-234755

PATIENT
  Age: 22 Year
  Sex: Female
  Weight: 55.33 kg

DRUGS (1)
  1. SKYLA [Suspect]
     Active Substance: LEVONORGESTREL
     Indication: CONTRACEPTION
     Dosage: 14 MCG/24HR, CONT
     Route: 015
     Dates: start: 20171129, end: 20171129

REACTIONS (2)
  - Device difficult to use [None]
  - Embedded device [Recovered/Resolved]

NARRATIVE: CASE EVENT DATE: 20171129
